FAERS Safety Report 4886626-X (Version None)
Quarter: 2005Q4

REPORT INFORMATION
  Report Type: 
  Country: None (occurrence: None)
  Receive Date: 20051220
  Receipt Date: 20041208
  Transmission Date: 20060501
  Serious: Yes (Other)
  Sender: FDA-Public Use
  Company Number: HQWYE875709DEC04

PATIENT
  Age: 59 Year
  Sex: Female
  Weight: 49.94 kg

DRUGS (5)
  1. EFFEXOR XR [Suspect]
     Indication: DEPRESSION
     Dosage: 75 MG 1X PER 1 DAY; 150MG 1X 1DAY
     Route: 048
     Dates: start: 20040501, end: 20040601
  2. EFFEXOR XR [Suspect]
     Indication: DEPRESSION
     Dosage: 75 MG 1X PER 1 DAY; 150MG 1X 1DAY
     Route: 048
     Dates: start: 20040601, end: 20041101
  3. LASIX [Concomitant]
  4. CALCIUM (CALCIUM) [Concomitant]
  5. ZELNORM [Concomitant]

REACTIONS (8)
  - CHEST PAIN [None]
  - CHEST X-RAY ABNORMAL [None]
  - ELECTROCARDIOGRAM ABNORMAL [None]
  - FATIGUE [None]
  - HERPES ZOSTER [None]
  - SINUS BRADYCARDIA [None]
  - VOMITING [None]
  - WEIGHT INCREASED [None]
